FAERS Safety Report 13209669 (Version 1)
Quarter: 2017Q1

REPORT INFORMATION
  Report Type: Spontaneous
  Country: None (occurrence: US)
  Receive Date: 20170209
  Receipt Date: 20170209
  Transmission Date: 20170428
  Serious: No
  Sender: FDA-Public Use
  Company Number: US-ALLERGAN-1651773US

PATIENT
  Sex: Female

DRUGS (6)
  1. BOTOX [Suspect]
     Active Substance: ONABOTULINUMTOXINA
     Indication: MIGRAINE
     Dosage: 100 UNITS, SINGLE
     Route: 030
     Dates: start: 20160302, end: 20160302
  2. BOTOX [Suspect]
     Active Substance: ONABOTULINUMTOXINA
     Indication: TORTICOLLIS
  3. GABAPENTIN. [Concomitant]
     Active Substance: GABAPENTIN
     Indication: PAIN
     Dosage: UNK UNK, UNKNOWN
     Route: 048
  4. PERCOCET [Concomitant]
     Active Substance: ACETAMINOPHEN\OXYCODONE HYDROCHLORIDE
     Indication: PAIN
     Dosage: UNK UNK, UNKNOWN
     Route: 048
  5. DIAZEPAM. [Concomitant]
     Active Substance: DIAZEPAM
     Indication: PAIN
     Dosage: UNK UNK, UNKNOWN
     Route: 048
  6. MOTRIN [Concomitant]
     Active Substance: IBUPROFEN
     Indication: PAIN
     Dosage: UNK UNK, UNKNOWN
     Route: 048

REACTIONS (4)
  - Axillary mass [Not Recovered/Not Resolved]
  - Pain in extremity [Not Recovered/Not Resolved]
  - Hypoaesthesia [Not Recovered/Not Resolved]
  - Benign breast neoplasm [Not Recovered/Not Resolved]
